FAERS Safety Report 7081931-3 (Version None)
Quarter: 2010Q4

REPORT INFORMATION
  Report Type: 
  Country: None (occurrence: None)
  Receive Date: 20101103
  Receipt Date: 20101028
  Transmission Date: 20110411
  Serious: Yes (Hospitalization)
  Sender: FDA-Public Use
  Company Number: FI-PFIZER INC-2010131645

PATIENT
  Age: 36 Year
  Sex: Female
  Weight: 85 kg

DRUGS (13)
  1. DALACIN [Suspect]
     Indication: DEVICE RELATED INFECTION
     Dosage: 300 MG, 3X/DAY
     Dates: start: 20101013, end: 20101015
  2. VANCOMYCIN HCL [Suspect]
     Indication: DEVICE RELATED INFECTION
     Dosage: 1 G, 2X/DAY
     Route: 042
     Dates: start: 20100901, end: 20100101
  3. RIMAPEN [Suspect]
     Indication: DEVICE RELATED INFECTION
     Dosage: UNK
     Dates: start: 20100901, end: 20100101
  4. DALACIN C PHOSPHATE [Concomitant]
     Indication: DEVICE RELATED INFECTION
     Dosage: 600 MG, 4X/DAY
     Route: 042
     Dates: start: 20100101, end: 20101012
  5. TAVANIC [Concomitant]
     Indication: DEVICE RELATED INFECTION
     Dosage: 500 MG, 2X/DAY
     Route: 048
     Dates: start: 20100901, end: 20101012
  6. TAVANIC [Concomitant]
     Dosage: 750 MG, 1X/DAY
     Route: 048
     Dates: start: 20101013, end: 20101001
  7. TAVANIC [Concomitant]
     Dosage: 500 MG, 1X/DAY
     Route: 048
     Dates: start: 20101001
  8. DIFLUCAN [Concomitant]
     Dosage: 100 MG, 1X/DAY
     Dates: start: 20100101
  9. DUACT [Concomitant]
     Dosage: 1 CAPSULE ONCE DAILY
     Dates: start: 20100101
  10. KLEXANE [Concomitant]
     Dosage: 40 MG, 1X/DAY
  11. RIVAROXABAN [Concomitant]
     Indication: THROMBOSIS PROPHYLAXIS
     Dosage: 10 MG, 1X/DAY
     Dates: start: 20100901
  12. OMEPRAZOLE [Concomitant]
     Dosage: 20 MG, 1X/DAY
  13. MOBIC [Concomitant]
     Dosage: 15 MG, 1X/DAY

REACTIONS (6)
  - DRUG ERUPTION [None]
  - DYSPNOEA [None]
  - PHARYNGEAL OEDEMA [None]
  - RASH ERYTHEMATOUS [None]
  - TONGUE DISCOLOURATION [None]
  - TOOTH DISCOLOURATION [None]
